FAERS Safety Report 26132218 (Version 2)
Quarter: 2025Q4

REPORT INFORMATION
  Report Type: Spontaneous
  Country: US (occurrence: None)
  Receive Date: 20251208
  Receipt Date: 20251212
  Transmission Date: 20260117
  Serious: Yes (Other)
  Sender: UCB
  Company Number: US-UCBSA-2025077142

PATIENT
  Age: 59 Year

DRUGS (2)
  1. KEPPRA [Interacting]
     Active Substance: LEVETIRACETAM
     Indication: Epilepsy
  2. OXCARBAZEPINE [Suspect]
     Active Substance: OXCARBAZEPINE
     Indication: Epilepsy
     Dosage: 1200 MILLIGRAM

REACTIONS (5)
  - Generalised tonic-clonic seizure [Unknown]
  - Hyponatraemia [Unknown]
  - Drug interaction [Unknown]
  - Diarrhoea [Unknown]
  - Aura [Unknown]
